FAERS Safety Report 18293596 (Version 2)
Quarter: 2020Q4

REPORT INFORMATION
  Report Type: Spontaneous
  Country: US (occurrence: US)
  Receive Date: 20200922
  Receipt Date: 20201119
  Transmission Date: 20210113
  Serious: No
  Sender: FDA-Public Use
  Company Number: US-ASTRAZENECA-2020SF20280

PATIENT
  Age: 43 Year
  Sex: Female
  Weight: 68 kg

DRUGS (3)
  1. NYASTATIN [Concomitant]
     Indication: CANDIDA INFECTION
  2. SYMBICORT [Suspect]
     Active Substance: BUDESONIDE\FORMOTEROL FUMARATE DIHYDRATE
     Indication: ASTHMA
     Dosage: 160/4.5MCG, 2 PUFFS TWICE DAILY
     Route: 055
     Dates: start: 2009
  3. SYMBICORT [Suspect]
     Active Substance: BUDESONIDE\FORMOTEROL FUMARATE DIHYDRATE
     Indication: EMPHYSEMA
     Dosage: 160/4.5MCG, 2 PUFFS TWICE DAILY
     Route: 055
     Dates: start: 2009

REACTIONS (4)
  - Weight increased [Unknown]
  - Oral candidiasis [Not Recovered/Not Resolved]
  - Device use issue [Unknown]
  - Product packaging issue [Unknown]

NARRATIVE: CASE EVENT DATE: 2009
